FAERS Safety Report 7320669-1 (Version None)
Quarter: 2011Q1

REPORT INFORMATION
  Report Type: 
  Country: None (occurrence: None)
  Receive Date: 20110228
  Receipt Date: 20110218
  Transmission Date: 20110831
  Serious: Yes (Other)
  Sender: FDA-Public Use
  Company Number: PHHO2011US03515

PATIENT
  Sex: Male
  Weight: 86.2 kg

DRUGS (3)
  1. ZOMETA [Suspect]
     Indication: MULTIPLE MYELOMA
     Dosage: 4 MG, UNK
     Route: 042
     Dates: start: 20090331
  2. CALCIUM [Concomitant]
  3. VITAMIN D [Concomitant]

REACTIONS (4)
  - TOOTH INFECTION [None]
  - OSTEONECROSIS OF JAW [None]
  - TOOTH INJURY [None]
  - ORAL CAVITY FISTULA [None]
